FAERS Safety Report 5707623-8 (Version None)
Quarter: 2008Q2

REPORT INFORMATION
  Report Type: 
  Country: None (occurrence: None)
  Receive Date: 20080416
  Receipt Date: 20080408
  Transmission Date: 20081010
  Serious: Yes (Hospitalization)
  Sender: FDA-Public Use
  Company Number: DE-PFIZER INC-2008029633

PATIENT
  Sex: Female
  Weight: 70 kg

DRUGS (5)
  1. SUTENT [Suspect]
     Indication: METASTATIC RENAL CELL CARCINOMA
     Dosage: DAILY DOSE:50MG
     Route: 048
     Dates: start: 20080223, end: 20080314
  2. SUTENT [Suspect]
     Dosage: DAILY DOSE:25MG
     Route: 048
  3. SUTENT [Suspect]
     Dosage: DAILY DOSE:50MG
     Route: 048
     Dates: start: 20080114, end: 20080215
  4. PANTOZOL [Concomitant]
     Route: 048
  5. EUTHYROX [Concomitant]
     Route: 048

REACTIONS (1)
  - CEREBROVASCULAR ACCIDENT [None]
